FAERS Safety Report 6442131-0 (Version None)
Quarter: 2009Q4

REPORT INFORMATION
  Report Type: 
  Country: None (occurrence: None)
  Receive Date: 20091116
  Receipt Date: 20091104
  Transmission Date: 20100525
  Serious: Yes (Other)
  Sender: FDA-Public Use
  Company Number: PHHY2009FI45907

PATIENT
  Age: 46 Year
  Sex: Female

DRUGS (4)
  1. SANDIMMUNE [Suspect]
     Indication: RHEUMATOID ARTHRITIS
     Dosage: 150 MG/ DAY
     Dates: start: 20090201
  2. PREDNISOLONE [Concomitant]
     Dosage: 10 MG/ DAY
  3. BURANA [Concomitant]
     Dosage: 400 MG, PRN
  4. HUMIRA [Concomitant]
     Dosage: UNK
     Dates: start: 20060101

REACTIONS (1)
  - NEUTROPENIA [None]
